FAERS Safety Report 18689569 (Version 1)
Quarter: 2020Q4

REPORT INFORMATION
  Report Type: Spontaneous
  Country: FR (occurrence: FR)
  Receive Date: 20201231
  Receipt Date: 20201231
  Transmission Date: 20210114
  Serious: No
  Sender: FDA-Public Use
  Company Number: FR-LUPIN PHARMACEUTICALS INC.-2020-11064

PATIENT
  Age: 40 Year

DRUGS (4)
  1. PHENELZINE [Suspect]
     Active Substance: PHENELZINE
     Indication: DEPRESSION
     Dosage: 45 MILLIGRAM, QD
     Route: 065
  2. KETAMINE [Suspect]
     Active Substance: KETAMINE
     Dosage: 0.75 MILLIGRAM/KILOGRAM WEEKLY (AFTER INTRODUCTION OF PHENELZINE; 3 INFUSIONS AND THEN 4 CONSOLIDATI
  3. MOCLOBEMIDE [Concomitant]
     Active Substance: MOCLOBEMIDE
     Indication: DEPRESSION
     Dosage: UNK
     Route: 065
  4. KETAMINE [Suspect]
     Active Substance: KETAMINE
     Indication: DEPRESSION
     Dosage: 0.5 MILLIGRAM/KILOGRAM (3 INFUSIONS)
     Route: 065

REACTIONS (1)
  - Off label use [Unknown]
